FAERS Safety Report 5911089-2 (Version None)
Quarter: 2008Q4

REPORT INFORMATION
  Report Type: 
  Country: None (occurrence: None)
  Receive Date: 20081007
  Receipt Date: 20071112
  Transmission Date: 20090506
  Serious: No
  Sender: FDA-Public Use
  Company Number: US-BRISTOL-MYERS SQUIBB COMPANY-13978671

PATIENT
  Age: 78 Year
  Sex: Male

DRUGS (1)
  1. AVAPRO [Suspect]
     Route: 048
     Dates: start: 20071007

REACTIONS (2)
  - ABDOMINAL PAIN [None]
  - DIARRHOEA [None]
